FAERS Safety Report 9101540 (Version 3)
Quarter: 2013Q2

REPORT INFORMATION
  Report Type: Report from Study
  Country: JP (occurrence: JP)
  Receive Date: 20130218
  Receipt Date: 20130513
  Transmission Date: 20140414
  Serious: Yes (Hospitalization)
  Sender: FDA-Public Use
  Company Number: JP-ASTRAZENECA-2013SE10017

PATIENT
  Age: 22455 Day
  Sex: Male

DRUGS (9)
  1. AZD6140 [Suspect]
     Indication: CORONARY ARTERY DISEASE
     Route: 048
     Dates: start: 20130110, end: 20130207
  2. BAYASPIRIN [Suspect]
     Route: 048
  3. NOVO RAPID [Concomitant]
     Indication: TYPE 2 DIABETES MELLITUS
     Route: 058
  4. LANSOPRAZOLE [Concomitant]
     Indication: PROPHYLAXIS AGAINST GASTROINTESTINAL ULCER
     Route: 048
  5. CARVEDILOL [Concomitant]
     Indication: HYPERTENSION
     Route: 048
  6. LEVEMIL [Concomitant]
     Indication: TYPE 2 DIABETES MELLITUS
     Route: 058
  7. BLOPRESS [Concomitant]
     Indication: HYPERTENSION
     Route: 048
  8. NIFEDIPINE CR [Concomitant]
     Indication: ACUTE MYOCARDIAL INFARCTION
     Route: 048
  9. CRESTOR [Concomitant]
     Indication: HYPERLIPIDAEMIA
     Route: 048

REACTIONS (1)
  - Gastrointestinal angiodysplasia haemorrhagic [Recovered/Resolved]
